FAERS Safety Report 12817978 (Version 1)
Quarter: 2016Q4

REPORT INFORMATION
  Report Type: Report from Study
  Country: CA (occurrence: CA)
  Receive Date: 20161005
  Receipt Date: 20161005
  Transmission Date: 20170207
  Serious: Yes (Death, Other)
  Sender: FDA-Public Use
  Company Number: CA-ALEXION-A201607489

PATIENT
  Age: 2 Month
  Sex: Female
  Weight: 5.02 kg

DRUGS (1)
  1. STRENSIQ [Suspect]
     Active Substance: ASFOTASE ALFA
     Indication: HYPOPHOSPHATASIA
     Dosage: 15 MG, TIW
     Route: 058
     Dates: start: 20160629, end: 20160921

REACTIONS (1)
  - Death [Fatal]

NARRATIVE: CASE EVENT DATE: 201609
